FAERS Safety Report 7298491-4 (Version None)
Quarter: 2011Q1

REPORT INFORMATION
  Report Type: 
  Country: None (occurrence: None)
  Receive Date: 20110217
  Receipt Date: 20110210
  Transmission Date: 20110831
  Serious: Yes (Hospitalization)
  Sender: FDA-Public Use
  Company Number: US-BRISTOL-MYERS SQUIBB COMPANY-15543481

PATIENT
  Age: 59 Year
  Sex: Female

DRUGS (3)
  1. LOVENOX [Suspect]
     Indication: HYPERCOAGULATION
     Route: 058
     Dates: start: 20060101
  2. COUMADIN [Suspect]
     Indication: HYPERCOAGULATION
  3. LOVENOX [Suspect]
     Indication: ATRIAL FIBRILLATION
     Route: 058
     Dates: start: 20060101

REACTIONS (6)
  - EPISTAXIS [None]
  - THROMBOSIS [None]
  - SKIN MASS [None]
  - INJECTION SITE HAEMATOMA [None]
  - CONTUSION [None]
  - HAEMATOMA [None]
